FAERS Safety Report 4520587-8 (Version None)
Quarter: 2004Q4

REPORT INFORMATION
  Report Type: 
  Country: None (occurrence: None)
  Receive Date: 20041203
  Receipt Date: 20041111
  Transmission Date: 20050328
  Serious: Yes (Other)
  Sender: FDA-Public Use
  Company Number: AE2004-0072

PATIENT
  Age: 14 Year
  Sex: Male

DRUGS (4)
  1. MUCINEX DM [Suspect]
     Dosage: ORAL
     Route: 048
     Dates: start: 20041105, end: 20041107
  2. PROZAC [Concomitant]
  3. RISPERDAL [Concomitant]
  4. STRATTERA [Concomitant]

REACTIONS (5)
  - ASTHENIA [None]
  - CONSTIPATION [None]
  - DRUG ABUSER [None]
  - OVERDOSE [None]
  - SOMNOLENCE [None]
